FAERS Safety Report 4416524-7 (Version None)
Quarter: 2004Q2

REPORT INFORMATION
  Report Type: 
  Country: None (occurrence: None)
  Receive Date: 20040630
  Receipt Date: 20040420
  Transmission Date: 20050107
  Serious: Yes (Hospitalization)
  Sender: FDA-Public Use
  Company Number: 04P-163-0251379-00

PATIENT
  Age: 76 Year
  Sex: Female
  Weight: 63.05 kg

DRUGS (6)
  1. HUMIRA [Suspect]
     Indication: RHEUMATOID ARTHRITIS
     Dosage: 40 MG, 1 IN 2 WK, SUBCUTANEOUS
     Route: 058
     Dates: start: 20030701, end: 20031201
  2. METHOTREXATE [Concomitant]
  3. ROFECOXIB [Concomitant]
  4. ATORVASTATIN [Concomitant]
  5. PHENYTOIN SODIUM [Concomitant]
  6. UNSPECIFIED MEDICATION [Concomitant]

REACTIONS (3)
  - CARDIAC FAILURE CONGESTIVE [None]
  - HYPERCHOLESTEROLAEMIA [None]
  - MYOCARDIAL INFARCTION [None]
